FAERS Safety Report 4492837-8 (Version None)
Quarter: 2004Q4

REPORT INFORMATION
  Report Type: 
  Country: None (occurrence: None)
  Receive Date: 20041102
  Receipt Date: 20041102
  Transmission Date: 20050328
  Serious: Yes (Hospitalization)
  Sender: FDA-Public Use
  Company Number: None

PATIENT
  Age: 73 Year
  Sex: Male
  Weight: 63.05 kg

DRUGS (1)
  1. ZOLOFT [Suspect]
     Indication: DEPRESSION
     Dosage: 25MG QD ORAL
     Route: 048
     Dates: start: 20040510, end: 20040527

REACTIONS (3)
  - ANXIETY [None]
  - PARADOXICAL DRUG REACTION [None]
  - SUICIDAL IDEATION [None]
